FAERS Safety Report 5125061-6 (Version None)
Quarter: 2006Q4

REPORT INFORMATION
  Report Type: 
  Country: None (occurrence: None)
  Receive Date: 20061010
  Receipt Date: 20061010
  Transmission Date: 20070319
  Serious: Yes (Hospitalization)
  Sender: FDA-Public Use
  Company Number: None

PATIENT
  Age: 82 Year
  Sex: Male

DRUGS (10)
  1. METHADONE HCL [Suspect]
     Indication: PAIN
     Dosage: 10 MG Q8 H
     Dates: start: 20060816
  2. MEGESTROL ACETATE [Concomitant]
  3. FELODIPINE [Concomitant]
  4. METOPROLOL TARTRATE [Concomitant]
  5. CYANOCOBALAMIN [Concomitant]
  6. OSCAL [Concomitant]
  7. FOSINOPRIL SODIUM [Concomitant]
  8. NITROGLYCERIN [Concomitant]
  9. FERROUS SULFATE TAB [Concomitant]
  10. OMEPRAZOLE [Concomitant]

REACTIONS (1)
  - FALL [None]
